FAERS Safety Report 21479697 (Version 12)
Quarter: 2023Q4

REPORT INFORMATION
  Report Type: Spontaneous
  Country: US (occurrence: US)
  Receive Date: 20221019
  Receipt Date: 20231018
  Transmission Date: 20240109
  Serious: Yes (Other)
  Sender: FDA-Public Use
  Company Number: US-PFIZER INC-PV202200021546

PATIENT
  Age: 67 Year
  Sex: Female

DRUGS (2)
  1. IBRANCE [Suspect]
     Active Substance: PALBOCICLIB
     Dosage: 100 MG
  2. IBRANCE [Suspect]
     Active Substance: PALBOCICLIB
     Dosage: 75 MG

REACTIONS (22)
  - Wound [Unknown]
  - Neoplasm progression [Unknown]
  - Neoplasm recurrence [Unknown]
  - Cancer pain [Unknown]
  - Fatigue [Unknown]
  - Grip strength decreased [Unknown]
  - Peripheral swelling [Unknown]
  - COVID-19 [Recovered/Resolved with Sequelae]
  - Alopecia [Unknown]
  - Depressed mood [Unknown]
  - Fall [Unknown]
  - Balance disorder [Unknown]
  - Blood pressure increased [Unknown]
  - Pain [Unknown]
  - Nervousness [Unknown]
  - Memory impairment [Unknown]
  - Fluid retention [Unknown]
  - Malaise [Unknown]
  - Muscle disorder [Unknown]
  - Pain in extremity [Unknown]
  - Hypersensitivity [Unknown]
  - Illness anxiety disorder [Unknown]

NARRATIVE: CASE EVENT DATE: 20221213
